FAERS Safety Report 16600733 (Version 1)
Quarter: 2019Q3

REPORT INFORMATION
  Report Type: Spontaneous
  Country: US (occurrence: US)
  Receive Date: 20190719
  Receipt Date: 20190719
  Transmission Date: 20191004
  Serious: No
  Sender: FDA-Public Use
  Company Number: US-PFIZER INC-2019196824

PATIENT
  Age: 80 Year
  Sex: Female

DRUGS (3)
  1. GABAPENTIN. [Concomitant]
     Active Substance: GABAPENTIN
     Indication: NERVE INJURY
     Dosage: 200 MG, 3X/DAY
  2. TALZENNA [Suspect]
     Active Substance: TALAZOPARIB TOSYLATE
     Indication: PLEURAL MESOTHELIOMA
     Dosage: 0.25 MG, UNK
     Route: 048
     Dates: start: 20190510
  3. TALZENNA [Suspect]
     Active Substance: TALAZOPARIB TOSYLATE
     Indication: MESOTHELIOMA

REACTIONS (5)
  - Fatigue [Unknown]
  - Decreased appetite [Unknown]
  - Product use in unapproved indication [Not Recovered/Not Resolved]
  - Malaise [Unknown]
  - Off label use [Not Recovered/Not Resolved]

NARRATIVE: CASE EVENT DATE: 20190510
